FAERS Safety Report 19714316 (Version 1)
Quarter: 2021Q3

REPORT INFORMATION
  Report Type: Spontaneous
  Country: US (occurrence: US)
  Receive Date: 20210817
  Receipt Date: 20210817
  Transmission Date: 20211014
  Serious: No
  Sender: FDA-Public Use
  Company Number: None

PATIENT
  Age: 68 Year
  Sex: Female
  Weight: 88.41 kg

DRUGS (16)
  1. BENADRYL [Concomitant]
     Active Substance: DIPHENHYDRAMINE HYDROCHLORIDE
  2. ADVAIR HFA [Concomitant]
     Active Substance: FLUTICASONE PROPIONATE\SALMETEROL XINAFOATE
  3. LOPRESSOR [Concomitant]
     Active Substance: METOPROLOL TARTRATE
  4. METFORMIN [Concomitant]
     Active Substance: METFORMIN HYDROCHLORIDE
  5. DIVALPROEX [Concomitant]
     Active Substance: DIVALPROEX SODIUM
  6. HYDROCHLOROTHIAZIDE. [Concomitant]
     Active Substance: HYDROCHLOROTHIAZIDE
  7. AMITRIPTYLINE [Concomitant]
     Active Substance: AMITRIPTYLINE
  8. GABAPENTIN. [Concomitant]
     Active Substance: GABAPENTIN
  9. METHIMAZOLE. [Concomitant]
     Active Substance: METHIMAZOLE
  10. POTASSIUM GLUCONATE [Concomitant]
     Active Substance: POTASSIUM GLUCONATE
  11. VENTOLIN [Concomitant]
     Active Substance: ALBUTEROL SULFATE
  12. LOSARTAN?HCTZ [Concomitant]
     Active Substance: HYDROCHLOROTHIAZIDE\LOSARTAN
  13. CAPECITABINE 500MG [Suspect]
     Active Substance: CAPECITABINE
     Indication: BREAST CANCER
     Dosage: 1500MG BIX7D, 7D OFF PO
     Route: 048
     Dates: start: 20210330
  14. MONELUKAST [Concomitant]
     Active Substance: MONTELUKAST SODIUM
  15. ZOFRAN [Concomitant]
     Active Substance: ONDANSETRON HYDROCHLORIDE
  16. ZOLMITRIPTAN. [Concomitant]
     Active Substance: ZOLMITRIPTAN

REACTIONS (1)
  - Nausea [None]
